FAERS Safety Report 12610529 (Version 1)
Quarter: 2016Q3

REPORT INFORMATION
  Report Type: Spontaneous
  Country: US (occurrence: None)
  Receive Date: 20160729
  Receipt Date: 20160729
  Transmission Date: 20161109
  Serious: Yes (Hospitalization)
  Sender: FDA-Public Use
  Company Number: None

PATIENT
  Age: 52 Year
  Sex: Male
  Weight: 97.2 kg

DRUGS (1)
  1. INFLIXIMAB [Suspect]
     Active Substance: INFLIXIMAB
     Route: 042
     Dates: start: 20160406, end: 20160413

REACTIONS (6)
  - Infusion related reaction [None]
  - Nausea [None]
  - Vomiting [None]
  - Abdominal pain [None]
  - Rash [None]
  - Arthralgia [None]

NARRATIVE: CASE EVENT DATE: 20160413
